FAERS Safety Report 10213933 (Version 1)
Quarter: 2014Q2

REPORT INFORMATION
  Report Type: Spontaneous
  Country: JP (occurrence: None)
  Receive Date: 20140529
  Receipt Date: 20140529
  Transmission Date: 20141212
  Serious: Yes (Hospitalization)
  Sender: FDA-Public Use
  Company Number: E7389-02126-SPO-JP

PATIENT
  Age: 46 Year
  Sex: Female

DRUGS (2)
  1. HALAVEN [Suspect]
     Indication: BREAST CANCER RECURRENT
     Dosage: 1 IN 3 WK,
     Dates: start: 20120204
  2. HERCEPTIN (TRASTUZUMAB) [Concomitant]

REACTIONS (2)
  - Pneumonia [None]
  - Neutropenia [None]
